FAERS Safety Report 21850434 (Version 1)
Quarter: 2023Q1

REPORT INFORMATION
  Report Type: Spontaneous
  Country: US (occurrence: None)
  Receive Date: 20230111
  Receipt Date: 20230111
  Transmission Date: 20230417
  Serious: Yes (Disabling)
  Sender: FDA-Public Use
  Company Number: None

PATIENT
  Age: 56 Year
  Sex: Female
  Weight: 81 kg

DRUGS (1)
  1. BUPRENORPHINE [Suspect]
     Active Substance: BUPRENORPHINE
     Indication: Pain
     Dosage: OTHER QUANTITY : 1 8 MG FILM;?FREQUENCY : DAILY;?
     Route: 060

REACTIONS (3)
  - Malocclusion [None]
  - Dental discomfort [None]
  - Dental caries [None]

NARRATIVE: CASE EVENT DATE: 20221118
